FAERS Safety Report 6506014-X (Version None)
Quarter: 2009Q4

REPORT INFORMATION
  Report Type: 
  Country: None (occurrence: None)
  Receive Date: 20091218
  Receipt Date: 20091214
  Transmission Date: 20100525
  Serious: Yes (Other)
  Sender: FDA-Public Use
  Company Number: US-B.I. PHARMACEUTICALS,INC./RIDGEFIELD-2009-BP-14534BP

PATIENT
  Sex: Male

DRUGS (1)
  1. SPIRIVA [Suspect]

REACTIONS (1)
  - LUNG NEOPLASM MALIGNANT [None]
